FAERS Safety Report 23452381 (Version 4)
Quarter: 2024Q2

REPORT INFORMATION
  Report Type: Spontaneous
  Country: US (occurrence: US)
  Receive Date: 20240129
  Receipt Date: 20240409
  Transmission Date: 20240716
  Serious: No
  Sender: FDA-Public Use
  Company Number: US-PFIZER INC-202200788120

PATIENT
  Age: 76 Year
  Sex: Female
  Weight: 56.7 kg

DRUGS (1)
  1. ESTRING [Suspect]
     Active Substance: ESTRADIOL
     Indication: Vulvovaginal dryness
     Dosage: 2 MG, EVERY 3 MONTHS

REACTIONS (1)
  - Device use issue [Unknown]

NARRATIVE: CASE EVENT DATE: 20240102
